FAERS Safety Report 5957488-4 (Version None)
Quarter: 2008Q4

REPORT INFORMATION
  Report Type: 
  Country: None (occurrence: None)
  Receive Date: 20081114
  Receipt Date: 20081103
  Transmission Date: 20090506
  Serious: Yes (Hospitalization)
  Sender: FDA-Public Use
  Company Number: 220028K08USA

PATIENT
  Age: 14 Year
  Sex: Male

DRUGS (1)
  1. SAIZEN [Suspect]
     Indication: GROWTH HORMONE DEFICIENCY
     Dates: start: 20080801

REACTIONS (5)
  - ENDOCRINE DISORDER [None]
  - FATIGUE [None]
  - FLUSHING [None]
  - HEADACHE [None]
  - PALPITATIONS [None]
